FAERS Safety Report 13834294 (Version 1)
Quarter: 2017Q3

REPORT INFORMATION
  Report Type: Spontaneous
  Country: GB (occurrence: GB)
  Receive Date: 20170804
  Receipt Date: 20170804
  Transmission Date: 20171127
  Serious: Yes (Hospitalization)
  Sender: FDA-Public Use
  Company Number: GB-TEVA-755401ACC

PATIENT
  Age: 47 Year
  Sex: Female
  Weight: 76 kg

DRUGS (11)
  1. MEFENAMIC ACID. [Interacting]
     Active Substance: MEFENAMIC ACID
     Indication: MENORRHAGIA
  2. LINAGLIPTIN? [Interacting]
     Active Substance: LINAGLIPTIN
     Indication: TYPE 2 DIABETES MELLITUS
     Dosage: 5 MILLIGRAM DAILY;
  3. OMEPRAZOLE. [Suspect]
     Active Substance: OMEPRAZOLE
     Indication: MENORRHAGIA
     Dates: start: 20170131
  4. CITALOPRAM? [Concomitant]
     Dosage: 40 MILLIGRAM DAILY;
  5. FLEXITOL HEEL BALM [Concomitant]
  6. FUCIDIN H [Concomitant]
     Dosage: 3 DOSAGE FORMS DAILY;
     Dates: start: 20170125
  7. RANITIDINE. [Concomitant]
     Active Substance: RANITIDINE
     Dosage: 150 MILLIGRAM DAILY;
  8. CARBIMAZOLE? [Concomitant]
     Dosage: 5 MILLIGRAM DAILY;
  9. PROPRANOLOL [Concomitant]
     Active Substance: PROPRANOLOL HYDROCHLORIDE
     Dosage: 120 MILLIGRAM DAILY;
  10. DAPAGLIFLOZIN. [Interacting]
     Active Substance: DAPAGLIFLOZIN
     Indication: TYPE 2 DIABETES MELLITUS
     Dosage: 10 MILLIGRAM DAILY;
     Dates: start: 20170125
  11. MEFENAMIC ACID. [Interacting]
     Active Substance: MEFENAMIC ACID
     Indication: ABDOMINAL PAIN
     Dosage: 1500 MILLIGRAM DAILY;
     Route: 048
     Dates: start: 20170131, end: 20170219

REACTIONS (2)
  - Renal failure [Recovering/Resolving]
  - Drug interaction [Unknown]

NARRATIVE: CASE EVENT DATE: 20170219
